FAERS Safety Report 5328457-2 (Version None)
Quarter: 2007Q2

REPORT INFORMATION
  Report Type: 
  Country: None (occurrence: None)
  Receive Date: 20070518
  Receipt Date: 20070511
  Transmission Date: 20071010
  Serious: Yes (Death, Other)
  Sender: FDA-Public Use
  Company Number: FR-BRISTOL-MYERS SQUIBB COMPANY-13780093

PATIENT
  Age: 77 Year
  Sex: Female

DRUGS (13)
  1. GLUCOPHAGE [Suspect]
     Indication: DIABETES MELLITUS NON-INSULIN-DEPENDENT
     Route: 048
     Dates: start: 20070104
  2. PREVISCAN [Concomitant]
     Dates: start: 20061001
  3. LASIX [Concomitant]
     Dates: start: 20061020
  4. DIFFU-K [Concomitant]
  5. CORDARONE [Concomitant]
     Route: 048
     Dates: start: 20061121, end: 20070108
  6. TIBERAL [Concomitant]
     Dates: start: 20070102
  7. VALACYCLOVIR HCL [Concomitant]
     Indication: ORAL HERPES
     Dates: start: 20070120
  8. NEURONTIN [Concomitant]
  9. CLAMOXYL [Concomitant]
     Dates: start: 20070103
  10. ACTRAPID [Concomitant]
     Indication: DIABETES MELLITUS
     Dates: start: 20070103
  11. AMARYL [Concomitant]
     Indication: DIABETES MELLITUS
     Dates: start: 20070104, end: 20070108
  12. CARDENSIEL [Concomitant]
     Indication: ATRIAL FIBRILLATION
     Dates: start: 20070108
  13. PRETERAX [Concomitant]

REACTIONS (7)
  - CARDIO-RESPIRATORY ARREST [None]
  - CONDUCTION DISORDER [None]
  - HEPATIC ENCEPHALOPATHY [None]
  - LACTIC ACIDOSIS [None]
  - MULTI-ORGAN FAILURE [None]
  - RENAL FAILURE ACUTE [None]
  - SHOCK [None]
